FAERS Safety Report 7084342-X (Version None)
Quarter: 2010Q4

REPORT INFORMATION
  Report Type: 
  Country: None (occurrence: None)
  Receive Date: 20101104
  Receipt Date: 20101026
  Transmission Date: 20110411
  Serious: Yes (Other)
  Sender: FDA-Public Use
  Company Number: US-PFIZER INC-2010137101

PATIENT
  Sex: Male
  Weight: 155 kg

DRUGS (3)
  1. VIAGRA [Suspect]
     Indication: DYSURIA
     Dosage: UNK, AS NEEDED
     Route: 048
  2. OXYCONTIN [Concomitant]
     Dosage: UNK
  3. PRILOSEC [Concomitant]
     Dosage: UNK

REACTIONS (1)
  - DYSURIA [None]
